FAERS Safety Report 9725793 (Version 2)
Quarter: 2013Q4

REPORT INFORMATION
  Report Type: Spontaneous
  Country: GB (occurrence: GB)
  Receive Date: 20131203
  Receipt Date: 20131212
  Transmission Date: 20140711
  Serious: Yes (Death, Hospitalization, Other)
  Sender: FDA-Public Use
  Company Number: GB-ASTELLAS-2013EU010666

PATIENT
  Age: 74 Year
  Sex: Male
  Weight: 80.5 kg

DRUGS (6)
  1. MYCAMINE [Suspect]
     Indication: CANDIDA INFECTION
     Dosage: 100 MG/DAY, UNKNOWN/D
     Route: 065
  2. MEROPENEM [Concomitant]
     Dosage: UNK
     Route: 065
  3. TEICOPLANIN [Concomitant]
     Dosage: UNK
     Route: 065
  4. TIGECYCLINE [Concomitant]
     Dosage: UNK
     Route: 065
  5. AMBISOME [Concomitant]
     Dosage: UNK
     Route: 065
  6. PIPERACILLIN/TAZOBACTAM [Concomitant]
     Dosage: UNK
     Route: 065

REACTIONS (6)
  - Drug ineffective [Unknown]
  - Intestinal ischaemia [Fatal]
  - Multi-organ failure [Fatal]
  - Leriche syndrome [Fatal]
  - Sepsis [Unknown]
  - Liver function test abnormal [Unknown]
